FAERS Safety Report 24912772 (Version 1)
Quarter: 2025Q1

REPORT INFORMATION
  Report Type: Spontaneous
  Country: AR (occurrence: AR)
  Receive Date: 20250131
  Receipt Date: 20250131
  Transmission Date: 20250408
  Serious: Yes (Other)
  Sender: AMGEN
  Company Number: AR-PFIZER INC-202500009681

PATIENT
  Sex: Female

DRUGS (1)
  1. ENBREL [Suspect]
     Active Substance: ETANERCEPT
     Indication: Product used for unknown indication
     Route: 065
     Dates: start: 202402

REACTIONS (3)
  - Breast cancer female [Not Recovered/Not Resolved]
  - Coeliac disease [Not Recovered/Not Resolved]
  - Pain [Not Recovered/Not Resolved]
